FAERS Safety Report 5776266-2 (Version None)
Quarter: 2008Q2

REPORT INFORMATION
  Report Type: 
  Country: None (occurrence: None)
  Receive Date: 20080616
  Receipt Date: 20080530
  Transmission Date: 20081010
  Serious: Yes (Other)
  Sender: FDA-Public Use
  Company Number: A-CH2008-20745

PATIENT
  Age: 12 Year
  Sex: Female

DRUGS (1)
  1. ZAVESCA [Suspect]
     Indication: GAUCHER'S DISEASE
     Dosage: ORAL
     Route: 048

REACTIONS (8)
  - ABASIA [None]
  - DISEASE PROGRESSION [None]
  - INTESTINAL PERFORATION [None]
  - MUSCULAR WEAKNESS [None]
  - OFF LABEL USE [None]
  - PROGRESSIVE MUSCULAR ATROPHY [None]
  - REPAIR OF IMPERFORATE RECTUM [None]
  - TREMOR [None]
